FAERS Safety Report 9338156 (Version 2)
Quarter: 2013Q4

REPORT INFORMATION
  Report Type: Spontaneous
  Country: JP (occurrence: JP)
  Receive Date: 20130610
  Receipt Date: 20131101
  Transmission Date: 20140711
  Serious: Yes (Other)
  Sender: FDA-Public Use
  Company Number: JP-B.I. PHARMACEUTICALS,INC./RIDGEFIELD-2013-BI-16008NB

PATIENT
  Age: 66 Year
  Sex: Female
  Weight: 90 kg

DRUGS (5)
  1. PRAZAXA [Suspect]
     Indication: ATRIAL FIBRILLATION
     Dosage: 300 MG
     Route: 048
     Dates: start: 20130313, end: 20130528
  2. EQUA [Concomitant]
     Indication: DIABETES MELLITUS
     Dosage: 100 MG
     Route: 048
     Dates: start: 20130303
  3. METGLUCO [Concomitant]
     Indication: DIABETES MELLITUS
     Dosage: 500 MG
     Route: 048
     Dates: start: 20130303
  4. GRTPA [Concomitant]
     Dosage: 31320000 U
     Dates: start: 20130303
  5. RADICUT [Concomitant]
     Dosage: 60 MG
     Dates: start: 20130303, end: 20130313

REACTIONS (2)
  - Uterine cancer [Not Recovered/Not Resolved]
  - Activated partial thromboplastin time prolonged [Not Recovered/Not Resolved]
